FAERS Safety Report 9267701 (Version 2)
Quarter: 2013Q3

REPORT INFORMATION
  Report Type: Report from Study
  Country: US (occurrence: US)
  Receive Date: 20130502
  Receipt Date: 20130802
  Transmission Date: 20140515
  Serious: Yes (Death, Hospitalization)
  Sender: FDA-Public Use
  Company Number: US-ALEXION-A201200883

PATIENT
  Age: 72 Year
  Sex: Male

DRUGS (1)
  1. SOLIRIS [Suspect]
     Indication: HAEMOLYTIC URAEMIC SYNDROME
     Dosage: UNK, SINGLE
     Dates: start: 20120420, end: 20120420

REACTIONS (2)
  - Cerebrovascular accident [Unknown]
  - Death [Fatal]
